FAERS Safety Report 9737469 (Version 1)
Quarter: 2013Q4

REPORT INFORMATION
  Report Type: Spontaneous
  Country: IT (occurrence: IT)
  Receive Date: 20131206
  Receipt Date: 20131206
  Transmission Date: 20140711
  Serious: Yes (Other)
  Sender: FDA-Public Use
  Company Number: IT-ASTRAZENECA-2013SE87997

PATIENT
  Age: 65 Year
  Sex: Female

DRUGS (9)
  1. BRILIQUE [Suspect]
     Indication: ACUTE CORONARY SYNDROME
     Route: 048
  2. ASA [Concomitant]
  3. ROSUVASTATIN [Concomitant]
  4. RAMIPRIL [Concomitant]
  5. LANSOPRAZOLE [Concomitant]
  6. METOPROLOL [Concomitant]
  7. TAVOR [Concomitant]
  8. LASIX [Concomitant]
     Route: 042
  9. PARACETAMOL [Concomitant]
     Route: 041

REACTIONS (3)
  - Pain in extremity [Unknown]
  - C-reactive protein increased [Unknown]
  - Red blood cell sedimentation rate increased [Unknown]
